FAERS Safety Report 19441085 (Version 5)
Quarter: 2021Q4

REPORT INFORMATION
  Report Type: Spontaneous
  Country: ES (occurrence: ES)
  Receive Date: 20210621
  Receipt Date: 20211028
  Transmission Date: 20220303
  Serious: Yes (Other)
  Sender: FDA-Public Use
  Company Number: ES-BAYER-2021-159186

PATIENT

DRUGS (17)
  1. EYLEA [Suspect]
     Active Substance: AFLIBERCEPT
     Indication: Diabetic retinal oedema
     Dosage: OU
     Route: 031
     Dates: start: 20191211, end: 20191211
  2. EYLEA [Suspect]
     Active Substance: AFLIBERCEPT
     Dosage: OU
     Route: 031
     Dates: start: 20200110, end: 20200110
  3. EYLEA [Suspect]
     Active Substance: AFLIBERCEPT
     Dosage: OU
     Route: 031
     Dates: start: 20200207, end: 20200207
  4. EYLEA [Suspect]
     Active Substance: AFLIBERCEPT
     Dosage: OU
     Route: 031
     Dates: start: 20200312, end: 20200312
  5. EYLEA [Suspect]
     Active Substance: AFLIBERCEPT
     Dosage: OU
     Route: 031
     Dates: start: 20200408, end: 20200408
  6. EYLEA [Suspect]
     Active Substance: AFLIBERCEPT
     Dosage: OU
     Route: 031
     Dates: start: 20200716, end: 20200716
  7. EYLEA [Suspect]
     Active Substance: AFLIBERCEPT
     Dosage: OU
     Route: 031
     Dates: start: 20200818, end: 20200818
  8. EYLEA [Suspect]
     Active Substance: AFLIBERCEPT
     Dosage: OU
     Route: 031
     Dates: start: 20201005, end: 20201005
  9. EYLEA [Suspect]
     Active Substance: AFLIBERCEPT
     Dosage: OS
     Route: 031
     Dates: start: 20201116, end: 20201116
  10. EYLEA [Suspect]
     Active Substance: AFLIBERCEPT
     Dosage: OD
     Route: 031
     Dates: start: 20201130, end: 20201130
  11. EYLEA [Suspect]
     Active Substance: AFLIBERCEPT
     Dosage: OS
     Route: 031
     Dates: start: 20201221, end: 20201221
  12. EYLEA [Suspect]
     Active Substance: AFLIBERCEPT
     Dosage: OS
     Route: 031
     Dates: start: 20210121, end: 20210121
  13. EYLEA [Suspect]
     Active Substance: AFLIBERCEPT
     Dosage: OD
     Route: 031
     Dates: start: 20210128, end: 20210128
  14. EYLEA [Suspect]
     Active Substance: AFLIBERCEPT
     Dosage: OS
     Route: 031
     Dates: start: 20210216, end: 20210216
  15. EYLEA [Suspect]
     Active Substance: AFLIBERCEPT
     Indication: Diabetic retinal oedema
     Dosage: OU
     Route: 031
     Dates: start: 20210325, end: 20210325
  16. EYLEA [Suspect]
     Active Substance: AFLIBERCEPT
     Dosage: OD
     Route: 031
     Dates: start: 20210511, end: 20210511
  17. EYLEA [Suspect]
     Active Substance: AFLIBERCEPT
     Dosage: OS
     Route: 031
     Dates: start: 20210623, end: 20210623

REACTIONS (9)
  - Cystoid macular oedema [Recovering/Resolving]
  - Macular oedema [Unknown]
  - Macular oedema [Unknown]
  - Macular oedema [Unknown]
  - Macular cyst [Recovering/Resolving]
  - Hypercholesterolaemia [Unknown]
  - Drug ineffective [Unknown]
  - Visual acuity reduced [Unknown]
  - Wrong technique in product usage process [Unknown]

NARRATIVE: CASE EVENT DATE: 20190101
